FAERS Safety Report 5971889-X (Version None)
Quarter: 2008Q4

REPORT INFORMATION
  Report Type: 
  Country: None (occurrence: None)
  Receive Date: 20081201
  Receipt Date: 20081111
  Transmission Date: 20090506
  Serious: Yes (Congenital Anomaly)
  Sender: FDA-Public Use
  Company Number: IL-ELI_LILLY_AND_COMPANY-IL200811005674

PATIENT

DRUGS (6)
  1. PROZAC [Suspect]
     Dosage: 20 MG, DAILY (1/D) (MEDIAN DAILY DOSE)
     Route: 064
  2. CARBAMAZEPINE [Concomitant]
     Dosage: UNK, UNKNOWN
     Route: 064
  3. CLONAZEPAM [Concomitant]
     Dosage: UNK, UNKNOWN
     Route: 064
  4. ERYTHROMYCIN [Concomitant]
     Dosage: UNK, UNKNOWN
     Route: 064
  5. ETHINYL ESTRADIOL TAB [Concomitant]
     Dosage: UNK, UNKNOWN
     Route: 064
  6. LEVONORGESTREL [Concomitant]
     Dosage: UNK, UNKNOWN
     Route: 064

REACTIONS (2)
  - DRUG EXPOSURE DURING PREGNANCY [None]
  - HEART DISEASE CONGENITAL [None]
